FAERS Safety Report 18898147 (Version 1)
Quarter: 2021Q1

REPORT INFORMATION
  Report Type: Spontaneous
  Country: US (occurrence: US)
  Receive Date: 20210216
  Receipt Date: 20210216
  Transmission Date: 20210420
  Serious: No
  Sender: FDA-Public Use
  Company Number: US-UNITED THERAPEUTICS-UNT-2020-015101

PATIENT
  Age: 27 Year
  Sex: Male

DRUGS (4)
  1. MACITENTAN [Concomitant]
     Active Substance: MACITENTAN
     Indication: PULMONARY ARTERIAL HYPERTENSION
     Dosage: 10 MG, QD
     Route: 048
     Dates: start: 20200926
  2. REMODULIN [Suspect]
     Active Substance: TREPROSTINIL
     Dosage: 0.0267 ?G/KG, CONTINUING
     Route: 058
     Dates: start: 2020
  3. REMODULIN [Suspect]
     Active Substance: TREPROSTINIL
     Dosage: 0.0253 ?G/KG, CONTINUING
     Route: 058
  4. REMODULIN [Suspect]
     Active Substance: TREPROSTINIL
     Indication: PULMONARY ARTERIAL HYPERTENSION
     Dosage: UNK, CONTINUING
     Route: 058
     Dates: start: 20200815

REACTIONS (7)
  - Off label use of device [Unknown]
  - Device leakage [Unknown]
  - Flushing [Unknown]
  - Malaise [Unknown]
  - Device malfunction [Unknown]
  - Diarrhoea [Unknown]
  - Mydriasis [Unknown]

NARRATIVE: CASE EVENT DATE: 20200815
